FAERS Safety Report 6104752-4 (Version None)
Quarter: 2009Q1

REPORT INFORMATION
  Report Type: 
  Country: None (occurrence: None)
  Receive Date: 20090306
  Receipt Date: 20090227
  Transmission Date: 20090719
  Serious: Yes (Other)
  Sender: FDA-Public Use
  Company Number: US-RANBAXY-2009US-21419

PATIENT

DRUGS (3)
  1. ISOTRETINOIN [Suspect]
     Indication: DRUG USE FOR UNKNOWN INDICATION
     Dosage: 40 MG, BID
     Route: 048
     Dates: start: 20080123, end: 20080101
  2. ISOTRETINOIN [Suspect]
     Dosage: UNK
     Dates: start: 20070706, end: 20071111
  3. HEMORRHOIDAL HYDOCORTISONE [Suspect]
     Indication: HAEMORRHOIDAL HAEMORRHAGE
     Dosage: UNK
     Route: 054
     Dates: start: 20080907

REACTIONS (2)
  - HAEMORRHOIDAL HAEMORRHAGE [None]
  - PREGNANCY [None]
